FAERS Safety Report 15033978 (Version 2)
Quarter: 2018Q4

REPORT INFORMATION
  Report Type: Report from Study
  Country: None (occurrence: US)
  Receive Date: 20180620
  Receipt Date: 20181209
  Transmission Date: 20190204
  Serious: Yes (Hospitalization, Other)
  Sender: FDA-Public Use
  Company Number: US-ABBVIE-18K-163-2254825-00

PATIENT
  Age: 39 Year
  Sex: Female

DRUGS (2)
  1. HUMIRA [Suspect]
     Active Substance: ADALIMUMAB
     Indication: SARCOIDOSIS
     Route: 058
     Dates: start: 2018
  2. HUMIRA [Suspect]
     Active Substance: ADALIMUMAB
     Indication: UVEITIS
     Route: 058
     Dates: start: 2017, end: 2018

REACTIONS (10)
  - Sciatica [Unknown]
  - Nerve compression [Unknown]
  - Drug specific antibody present [Unknown]
  - Myalgia [Unknown]
  - Coagulopathy [Recovering/Resolving]
  - Lung disorder [Unknown]
  - Migraine [Recovered/Resolved]
  - Injection site pruritus [Unknown]
  - Uveitis [Unknown]
  - Muscle spasms [Unknown]

NARRATIVE: CASE EVENT DATE: 201801
